FAERS Safety Report 4531382-8 (Version None)
Quarter: 2004Q4

REPORT INFORMATION
  Report Type: 
  Country: None (occurrence: None)
  Receive Date: 20041216
  Receipt Date: 20041130
  Transmission Date: 20050328
  Serious: Yes (Death, Life-Threatening, Hospitalization, Other)
  Sender: FDA-Public Use
  Company Number: USA041080381

PATIENT
  Age: 69 Year
  Sex: Female
  Weight: 134 kg

DRUGS (3)
  1. GEMZAR [Suspect]
     Indication: BREAST CANCER
     Dates: start: 20040921
  2. ENALAPRIL [Concomitant]
  3. COMPAZINE [Concomitant]

REACTIONS (11)
  - ASTHENIA [None]
  - BLOOD BILIRUBIN ABNORMAL [None]
  - DEHYDRATION [None]
  - DEPRESSED LEVEL OF CONSCIOUSNESS [None]
  - DIARRHOEA [None]
  - FEELING ABNORMAL [None]
  - HAEMOGLOBIN DECREASED [None]
  - PYREXIA [None]
  - RENAL FAILURE [None]
  - THROMBOTIC THROMBOCYTOPENIC PURPURA [None]
  - VOMITING [None]
